FAERS Safety Report 8119935-1 (Version None)
Quarter: 2012Q1

REPORT INFORMATION
  Report Type: 
  Country: None (occurrence: None)
  Receive Date: 20120207
  Receipt Date: 20120123
  Transmission Date: 20120608
  Serious: Yes (Other)
  Sender: FDA-Public Use
  Company Number: IR-WATSON-2012-01865

PATIENT
  Age: 56 Year
  Sex: Female

DRUGS (3)
  1. PREDNISOLONE [Suspect]
     Indication: ADRENAL INSUFFICIENCY
     Dosage: 7.5MG
     Route: 065
  2. PSYLLIUM (UNKNOWN) [Suspect]
     Indication: PRODUCT USED FOR UNKNOWN INDICATION
  3. FLUDROCORTISONE ACETATE [Suspect]
     Indication: ADRENAL INSUFFICIENCY

REACTIONS (2)
  - ADRENOCORTICAL INSUFFICIENCY ACUTE [None]
  - DRUG INTERACTION [None]
